FAERS Safety Report 5101237-9 (Version None)
Quarter: 2006Q3

REPORT INFORMATION
  Report Type: 
  Country: None (occurrence: None)
  Receive Date: 20060906
  Receipt Date: 20060825
  Transmission Date: 20061208
  Serious: Yes (Hospitalization)
  Sender: FDA-Public Use
  Company Number: E3810-00113-SPO-JP

PATIENT
  Age: 65 Year
  Sex: Male

DRUGS (3)
  1. PARIET (RABEPRAZOLE) (RABEPRAZOLE SODIUM) [Suspect]
     Indication: GASTRIC ULCER HAEMORRHAGE
     Dosage: 10 MG, 1 IN 1 D, ORAL
     Route: 048
     Dates: start: 20060501
  2. MAGLAX (MAG-LAX) [Concomitant]
  3. OXYCONTIN [Concomitant]

REACTIONS (1)
  - PNEUMONIA [None]
